FAERS Safety Report 17450878 (Version 2)
Quarter: 2022Q1

REPORT INFORMATION
  Report Type: Spontaneous
  Country: US (occurrence: US)
  Receive Date: 20200224
  Receipt Date: 20220224
  Transmission Date: 20220423
  Serious: No
  Sender: FDA-Public Use
  Company Number: US-VERTEX PHARMACEUTICALS-2020-003313

PATIENT
  Sex: Female

DRUGS (12)
  1. TRIKAFTA [Suspect]
     Active Substance: ELEXACAFTOR\IVACAFTOR\TEZACAFTOR
     Indication: Cystic fibrosis
     Dosage: UNK FREQUENCY
     Route: 048
     Dates: start: 20200214
  2. TRIKAFTA [Suspect]
     Active Substance: ELEXACAFTOR\IVACAFTOR\TEZACAFTOR
     Dosage: ONE TAB AM AND 2 TABS PM; FLIPPED DOSE
     Route: 048
  3. ALBUTEROL [Concomitant]
     Active Substance: ALBUTEROL
  4. FLUTICASONE [Concomitant]
     Active Substance: FLUTICASONE
  5. LANSOPRAZOLE [Concomitant]
     Active Substance: LANSOPRAZOLE
  6. CETIRIZINE [Concomitant]
     Active Substance: CETIRIZINE HYDROCHLORIDE
  7. AZTREONAM [Concomitant]
     Active Substance: AZTREONAM
  8. PULMOZYME [Concomitant]
     Active Substance: DORNASE ALFA
  9. TOBRAMYCIN [Concomitant]
     Active Substance: TOBRAMYCIN
  10. MOMETASONE [Concomitant]
     Active Substance: MOMETASONE
  11. PANCRELIPASE [Concomitant]
     Active Substance: PANCRELIPASE
  12. ERGOCALCIFEROL [Concomitant]
     Active Substance: ERGOCALCIFEROL

REACTIONS (1)
  - Migraine [Unknown]
